FAERS Safety Report 8183795-3 (Version None)
Quarter: 2012Q1

REPORT INFORMATION
  Report Type: 
  Country: None (occurrence: None)
  Receive Date: 20120220
  Receipt Date: 20110404
  Transmission Date: 20120608
  Serious: Yes (Other)
  Sender: FDA-Public Use
  Company Number: TRP_07667_2011

PATIENT
  Age: 31 Year
  Sex: Female

DRUGS (2)
  1. RIBAVIRIN [Suspect]
     Indication: HEPATITIS C
     Dosage: 800 MG, ORAL
     Route: 048
     Dates: start: 20100325, end: 20110217
  2. PEGASYS [Suspect]
     Indication: HEPATITIS C
     Dosage: 135 MCG, SUBCUTANEOUS
     Route: 058
     Dates: start: 20100325, end: 20110217

REACTIONS (2)
  - MATERNAL EXPOSURE DURING PREGNANCY [None]
  - ABORTION SPONTANEOUS [None]
